FAERS Safety Report 19037385 (Version 1)
Quarter: 2021Q1

REPORT INFORMATION
  Report Type: Spontaneous
  Country: US (occurrence: US)
  Receive Date: 20210322
  Receipt Date: 20210322
  Transmission Date: 20210420
  Serious: Yes (Hospitalization, Other)
  Sender: FDA-Public Use
  Company Number: US-EPICPHARMA-US-2021EPCLIT00287

PATIENT
  Age: 84 Year
  Sex: Female

DRUGS (3)
  1. INSULIN [Interacting]
     Active Substance: INSULIN NOS
     Indication: KETOACIDOSIS
     Route: 041
  2. METFORMIN HYDROCHLORIDE. [Suspect]
     Active Substance: METFORMIN HYDROCHLORIDE
     Indication: TYPE 2 DIABETES MELLITUS
     Route: 065
  3. DEXTROSE. [Interacting]
     Active Substance: DEXTROSE
     Indication: KETOACIDOSIS
     Route: 065

REACTIONS (2)
  - Lactic acidosis [Recovered/Resolved]
  - Euglycaemic diabetic ketoacidosis [Recovered/Resolved]
